FAERS Safety Report 20981338 (Version 2)
Quarter: 2022Q3

REPORT INFORMATION
  Report Type: Report from Study
  Country: CN (occurrence: CN)
  Receive Date: 20220620
  Receipt Date: 20220722
  Transmission Date: 20221026
  Serious: Yes (Hospitalization)
  Sender: FDA-Public Use
  Company Number: CN-BRISTOL-MYERS SQUIBB COMPANY-2022-053530

PATIENT
  Age: 75 Year
  Sex: Male
  Weight: 80 kg

DRUGS (11)
  1. AZACITIDINE [Suspect]
     Active Substance: AZACITIDINE
     Indication: Myelodysplastic syndrome
     Dosage: DAYS WITHIN THE FIRST 9 CALENDAR DAYS OF EACH 28-DAY CYCLE
     Route: 058
     Dates: start: 20220509
  2. VENETOCLAX [Suspect]
     Active Substance: VENETOCLAX
     Indication: Myelodysplastic syndrome
     Dosage: DAYS 1 - 14 OF EACH 28-DAY CYCLE
     Route: 048
     Dates: start: 20220509
  3. FEBUXOSTAT [Concomitant]
     Active Substance: FEBUXOSTAT
     Indication: Product used for unknown indication
     Dosage: 1 IN 1 D
     Route: 048
     Dates: start: 20220426, end: 20220526
  4. DIISOPROPYLAMINE DICHLOROACETATE FOR INJECTION [Concomitant]
     Indication: Hepatobiliary disorder prophylaxis
     Dosage: 1 IN 1 D
     Route: 041
     Dates: start: 20220426, end: 20220526
  5. LANSOPRAZOLE FOR INJECTION [Concomitant]
     Indication: Product used for unknown indication
     Dosage: 1 IN 1 D
     Route: 041
     Dates: start: 20220426, end: 20220526
  6. CEFTIZOXIME SODIUM FOR INJECTION [Concomitant]
     Indication: Product used for unknown indication
     Dosage: 3 IN 1 D
     Route: 041
     Dates: start: 20220501, end: 20220526
  7. TRIMETBUTINE MALEATE EXTENDED RELEASE TABLETS [Concomitant]
     Indication: Prophylaxis
     Dosage: 2 IN 1 D
     Route: 048
     Dates: start: 20220503, end: 20220526
  8. DOLASETRON MESYLATE INJECTION [Concomitant]
     Indication: Product used for unknown indication
     Dosage: 1 IN 1 D
     Route: 040
     Dates: start: 20220509, end: 20220526
  9. THROMBOPOIETIN INJECTION [Concomitant]
     Indication: Product used for unknown indication
     Dosage: 1 IN 1 D
     Route: 058
     Dates: start: 20220518, end: 20220526
  10. HUMAN GRANULOCYTE STIMULATING FACTOR [Concomitant]
     Indication: Product used for unknown indication
     Dosage: 1 IN 1 D
     Route: 058
     Dates: start: 20220518, end: 20220526
  11. ALLOPURINOL [Concomitant]
     Active Substance: ALLOPURINOL
     Indication: Prophylaxis
     Route: 048
     Dates: start: 20220426, end: 20220526

REACTIONS (4)
  - White blood cell count decreased [Recovered/Resolved]
  - Neutrophil count decreased [Recovered/Resolved]
  - Pyrexia [Recovered/Resolved]
  - Lymphocyte count decreased [Not Recovered/Not Resolved]

NARRATIVE: CASE EVENT DATE: 20220520
